FAERS Safety Report 21333898 (Version 2)
Quarter: 2023Q1

REPORT INFORMATION
  Report Type: Spontaneous
  Country: US (occurrence: US)
  Receive Date: 20220914
  Receipt Date: 20230309
  Transmission Date: 20230417
  Serious: No
  Sender: FDA-Public Use
  Company Number: US-INCYTE CORPORATION-2022IN008720

PATIENT

DRUGS (3)
  1. JAKAFI [Suspect]
     Active Substance: RUXOLITINIB
     Dosage: 5 MILLIGRAM, QD
     Route: 048
     Dates: start: 20220914
  2. JAKAFI [Suspect]
     Active Substance: RUXOLITINIB
     Dosage: 5 MILLIGRAM, BID
     Route: 065
     Dates: start: 20220812
  3. JAKAFI [Suspect]
     Active Substance: RUXOLITINIB
     Dosage: UNK, 10MG QAM + 20MG QPM
     Route: 065
     Dates: start: 20230118

REACTIONS (2)
  - COVID-19 [Unknown]
  - Off label use [Unknown]

NARRATIVE: CASE EVENT DATE: 20220901
